FAERS Safety Report 12324837 (Version 2)
Quarter: 2016Q2

REPORT INFORMATION
  Report Type: Report from Study
  Country: CA (occurrence: CA)
  Receive Date: 20160502
  Receipt Date: 20160608
  Transmission Date: 20160815
  Serious: Yes (Death, Hospitalization)
  Sender: FDA-Public Use
  Company Number: CA-HLSUS-2016-CA-000078

PATIENT
  Age: 35 Year
  Sex: Male
  Weight: 91.2 kg

DRUGS (8)
  1. KCL [Concomitant]
     Active Substance: POTASSIUM CHLORIDE
     Indication: BLOOD POTASSIUM DECREASED
     Dosage: 10 MCG BID
     Route: 048
     Dates: start: 2012, end: 20160318
  2. SPIRONOLACTONE. [Concomitant]
     Active Substance: SPIRONOLACTONE
     Indication: CARDIAC FAILURE CONGESTIVE
     Dosage: 25 MG DIE
     Route: 048
     Dates: end: 20160313
  3. COVERSYL [Concomitant]
     Active Substance: PERINDOPRIL
     Indication: CARDIAC FAILURE CONGESTIVE
     Dosage: 4 MG DIE
     Route: 048
     Dates: end: 20160313
  4. CLOMIPRAMINE [Concomitant]
     Active Substance: CLOMIPRAMINE
     Indication: OBSESSIVE-COMPULSIVE DISORDER
     Dosage: 150 MG DIE
     Route: 048
     Dates: start: 2009, end: 20160323
  5. RISPERIDONE. [Concomitant]
     Active Substance: RISPERIDONE
     Indication: SCHIZOPHRENIA
     Dosage: 2 MG QAM 1 MG QPM
     Route: 048
     Dates: start: 20111129, end: 20160323
  6. CLOZARIL [Suspect]
     Active Substance: CLOZAPINE
     Indication: SCHIZOPHRENIA
     Dosage: 100 MG BID
     Route: 048
     Dates: start: 1996, end: 2011
  7. FUROSEMIDE. [Concomitant]
     Active Substance: FUROSEMIDE
     Indication: CARDIAC FAILURE CONGESTIVE
     Dosage: 40 DIE
     Dates: start: 2012, end: 2016
  8. DIGOXIN. [Concomitant]
     Active Substance: DIGOXIN
     Indication: CARDIAC FAILURE CONGESTIVE
     Dosage: 0.25 MG DIE
     Route: 048
     Dates: end: 20160313

REACTIONS (3)
  - Congestive cardiomyopathy [Fatal]
  - Refusal of treatment by patient [None]
  - Disease recurrence [None]

NARRATIVE: CASE EVENT DATE: 201106
